FAERS Safety Report 8619653-7 (Version None)
Quarter: 2012Q3

REPORT INFORMATION
  Report Type: 
  Country: None (occurrence: None)
  Receive Date: 20120824
  Receipt Date: 20110715
  Transmission Date: 20120928
  Serious: Yes (Disabling, Other)
  Sender: FDA-Public Use
  Company Number: US-TEVA-291339USA

PATIENT
  Sex: Male

DRUGS (2)
  1. METOCLOPRAMIDE [Suspect]
  2. METOCLOPRAMIDE [Suspect]

REACTIONS (3)
  - DYSKINESIA [None]
  - NERVOUS SYSTEM DISORDER [None]
  - EXTRAPYRAMIDAL DISORDER [None]
